FAERS Safety Report 22335310 (Version 4)
Quarter: 2023Q2

REPORT INFORMATION
  Report Type: Report from Study
  Country: US (occurrence: US)
  Receive Date: 20230518
  Receipt Date: 20230621
  Transmission Date: 20230721
  Serious: Yes (Hospitalization)
  Sender: FDA-Public Use
  Company Number: US-BRISTOL-MYERS SQUIBB COMPANY-2023-062180

PATIENT
  Age: 62 Year
  Sex: Male
  Weight: 125 kg

DRUGS (17)
  1. DARATUMUMAB [Suspect]
     Active Substance: DARATUMUMAB
     Indication: Plasma cell myeloma
     Dosage: ON 26-APR-2023, THE PATIENT RECEIVED HIS LAST INFUSION OF DARATUMUMAB THERAPY (PRIOR TO EVENT ONSET)
     Route: 058
     Dates: start: 20230216
  2. DEXAMETHASONE [Suspect]
     Active Substance: DEXAMETHASONE
     Indication: Plasma cell myeloma
     Dosage: ON 05-APR-2023, THE PATIENT RECEIVED HIS RECENT DOSE OF STUDY THERAPY PRIOR TO EVENT ONSET.
     Route: 048
     Dates: start: 20230315
  3. VITAMINS NOS [Concomitant]
     Active Substance: VITAMINS
     Indication: Supplementation therapy
     Dosage: 1 TABLET
     Route: 048
     Dates: start: 20160309
  4. APPLE CIDER VINEGAR [MALUS SPP. VINEGAR EXTRACT] [Concomitant]
     Indication: Supplementation therapy
     Dosage: 1 TABLET
     Route: 048
     Dates: start: 20170215
  5. ASCORBIC ACID [Concomitant]
     Active Substance: ASCORBIC ACID
     Indication: Supplementation therapy
     Route: 048
     Dates: start: 20220824
  6. CHOLECALCIFEROL [Concomitant]
     Active Substance: CHOLECALCIFEROL
     Indication: Supplementation therapy
     Route: 048
     Dates: start: 20170320
  7. CINNAMON\HERBALS [Concomitant]
     Active Substance: CINNAMON\HERBALS
     Indication: Gastrointestinal disorder prophylaxis
     Dosage: 1 TABLET
     Route: 048
     Dates: start: 20170215
  8. UBIDECARENONE [Concomitant]
     Active Substance: UBIDECARENONE
     Indication: Antioxidant therapy
     Route: 048
     Dates: start: 20201216
  9. ELIQUIS [Concomitant]
     Active Substance: APIXABAN
     Indication: Atrial fibrillation
     Route: 048
     Dates: start: 20180611
  10. GLUCOSAMINE SULFATE [Concomitant]
     Active Substance: GLUCOSAMINE SULFATE
     Indication: Supplementation therapy
     Route: 048
     Dates: start: 20160309
  11. LOPERAMIDE [Concomitant]
     Active Substance: LOPERAMIDE
     Indication: Diarrhoea
     Dosage: FREQUENCY : PRN
     Route: 048
     Dates: start: 20211201
  12. ZEAXANTHIN [Concomitant]
     Active Substance: ZEAXANTHIN
     Indication: Eye disorder prophylaxis
     Route: 048
     Dates: start: 20160309
  13. METOPROLOL TARTRATE [Concomitant]
     Active Substance: METOPROLOL TARTRATE
     Indication: Atrial fibrillation
     Route: 048
     Dates: start: 20180316
  14. NIACIN [Concomitant]
     Active Substance: NIACIN
     Indication: Supplementation therapy
     Route: 048
     Dates: start: 20160309
  15. OMEGA-3 FATTY ACIDS [Concomitant]
     Active Substance: OMEGA-3 FATTY ACIDS
     Indication: Supplementation therapy
     Route: 048
     Dates: start: 20160309
  16. PROBIOTIC BLEND [Concomitant]
     Indication: Prophylaxis
     Dosage: 1 CAPSULE
     Route: 048
     Dates: start: 20170215
  17. VITAMIN B COMPLEX WITH C [Concomitant]
     Active Substance: ASCORBIC ACID\CALCIUM PANTOTHENATE\CYANOCOBALAMIN\NIACINAMIDE\PYRIDOXINE HYDROCHLORIDE\RIBOFLAVIN\TH
     Indication: Supplementation therapy
     Dosage: 1 TABLET
     Route: 048
     Dates: start: 20170215

REACTIONS (1)
  - Atrial fibrillation [Not Recovered/Not Resolved]

NARRATIVE: CASE EVENT DATE: 20230430
